FAERS Safety Report 24677907 (Version 5)
Quarter: 2025Q3

REPORT INFORMATION
  Report Type: Report from Study
  Country: BR (occurrence: BR)
  Receive Date: 20241129
  Receipt Date: 20250715
  Transmission Date: 20251020
  Serious: Yes (Other)
  Sender: TAKEDA
  Company Number: BR-TAKEDA-2024TUS107085

PATIENT
  Age: 31 Year
  Sex: Female

DRUGS (2)
  1. VEDOLIZUMAB [Suspect]
     Active Substance: VEDOLIZUMAB
     Indication: Colitis ulcerative
  2. VEDOLIZUMAB [Suspect]
     Active Substance: VEDOLIZUMAB
     Dosage: 300 MILLIGRAM, Q4WEEKS

REACTIONS (12)
  - Colitis ulcerative [Not Recovered/Not Resolved]
  - Inappropriate schedule of product administration [Unknown]
  - Gastrointestinal disorder [Unknown]
  - Loss of personal independence in daily activities [Unknown]
  - Depressed mood [Unknown]
  - Discouragement [Unknown]
  - Rectal tenesmus [Unknown]
  - Anger [Unknown]
  - Abdominal pain [Unknown]
  - Flatulence [Unknown]
  - Fatigue [Unknown]
  - Product availability issue [Unknown]

NARRATIVE: CASE EVENT DATE: 20241016
